FAERS Safety Report 20818241 (Version 1)
Quarter: 2022Q2

REPORT INFORMATION
  Report Type: Spontaneous
  Country: US (occurrence: US)
  Receive Date: 20220512
  Receipt Date: 20220512
  Transmission Date: 20220721
  Serious: No
  Sender: FDA-Public Use
  Company Number: US-PFIZER INC-202200056796

PATIENT
  Age: 58 Year
  Sex: Female

DRUGS (9)
  1. XELJANZ XR [Suspect]
     Active Substance: TOFACITINIB CITRATE
     Dosage: 11 MG, AS NEEDED (11 MG ORAL DAILY)
     Route: 048
     Dates: start: 20210724
  2. IBUPROFEN [Concomitant]
     Active Substance: IBUPROFEN
     Dosage: 200 MG, UNK
  3. PREDNISONE [Concomitant]
     Active Substance: PREDNISONE
     Dosage: 10 MG, UNK (10 MG TAB DS PK)
  4. FOLIC ACID [Concomitant]
     Active Substance: FOLIC ACID
     Dosage: 0.4 MG, UNK
  5. HYDROCHLOROTHIAZIDE\TRIAMTERENE [Concomitant]
     Active Substance: HYDROCHLOROTHIAZIDE\TRIAMTERENE
     Dosage: UNK (37.5-25 MG CAPSULE)
  6. OMEPRAZOLE [Concomitant]
     Active Substance: OMEPRAZOLE
     Dosage: UNK
  7. AMLODIPINE BESYLATE [Concomitant]
     Active Substance: AMLODIPINE BESYLATE
     Dosage: UNK
  8. VITAMIN D NOS [Concomitant]
     Active Substance: VITAMIN D NOS
     Dosage: UNK
  9. METHOTREXATE [Concomitant]
     Active Substance: METHOTREXATE
     Dosage: UNK

REACTIONS (1)
  - Pain [Recovered/Resolved]
